FAERS Safety Report 4335935-1 (Version None)
Quarter: 2004Q2

REPORT INFORMATION
  Report Type: 
  Country: None (occurrence: None)
  Receive Date: 20040408
  Receipt Date: 20040325
  Transmission Date: 20050107
  Serious: Yes (Other)
  Sender: FDA-Public Use
  Company Number: 2004019324

PATIENT
  Age: 14 Year
  Sex: Male
  Weight: 81.6475 kg

DRUGS (2)
  1. NATURAL CITRUS LISTERINE (EUCALYPTOL , MENTHOL, METHYL SALICYLATE, THY [Suspect]
     Indication: DENTAL CARE
     Dosage: 1  CAPFUL ONCE, ORAL TOPICAL
     Route: 048
     Dates: start: 20040322, end: 20040322
  2. CALCIUM CARBONATE (CALCIUM CARBONATE) [Concomitant]

REACTIONS (2)
  - BLOOD PRESSURE FLUCTUATION [None]
  - RASH [None]
